FAERS Safety Report 21903280 (Version 2)
Quarter: 2023Q1

REPORT INFORMATION
  Report Type: Spontaneous
  Country: KR (occurrence: KR)
  Receive Date: 20230124
  Receipt Date: 20230208
  Transmission Date: 20230418
  Serious: Yes (Hospitalization, Other)
  Sender: FDA-Public Use
  Company Number: US-SA-2023SA021841

PATIENT
  Age: 67 Year
  Sex: Female
  Weight: 62.4 kg

DRUGS (24)
  1. OXALIPLATIN [Suspect]
     Active Substance: OXALIPLATIN
     Indication: Gastric cancer
     Dosage: 140 MG, QOW
     Route: 042
     Dates: start: 20221227, end: 20221227
  2. OXALIPLATIN [Suspect]
     Active Substance: OXALIPLATIN
     Dosage: 110 MG, QOW
     Route: 042
     Dates: start: 20230117
  3. FLUOROURACIL [Suspect]
     Active Substance: FLUOROURACIL
     Indication: Gastric cancer
     Dosage: 4560 MG, QOW
     Route: 042
     Dates: start: 20221227, end: 20221227
  4. FLUOROURACIL [Suspect]
     Active Substance: FLUOROURACIL
     Dosage: 3100 MG, QOW
     Route: 042
     Dates: start: 20230117
  5. DOMVANALIMAB [Suspect]
     Active Substance: DOMVANALIMAB
     Indication: Gastric cancer
     Dosage: 1600 MG, Q4W
     Route: 042
     Dates: start: 20221227
  6. ZIMBERELIMAB [Suspect]
     Active Substance: ZIMBERELIMAB
     Dosage: 480 MG, Q4W
     Route: 042
     Dates: start: 20221227
  7. LEUCOVORIN [Suspect]
     Active Substance: LEUCOVORIN
     Indication: Gastric cancer
     Dosage: 660 MG, QOW
     Route: 042
     Dates: start: 20221227
  8. AMLODIPINE BESYLATE\HYDROCHLOROTHIAZIDE\OLMESARTAN MEDOXOMIL [Concomitant]
     Active Substance: AMLODIPINE BESYLATE\HYDROCHLOROTHIAZIDE\OLMESARTAN MEDOXOMIL
     Indication: Hypertension
     Dosage: UNK
  9. DILTIAZEM HYDROCHLORIDE [Concomitant]
     Active Substance: DILTIAZEM HYDROCHLORIDE
     Indication: Hypertension
     Dosage: UNK
  10. CRESNON [Concomitant]
     Indication: Back pain
     Dosage: UNK
     Dates: start: 20230111
  11. JOINS [Concomitant]
     Indication: Back pain
     Dosage: UNK
  12. AROBEST [Concomitant]
     Indication: Back pain
     Dosage: UNK
  13. STILLEN [Concomitant]
     Indication: Back pain
     Dosage: UNK
  14. NAXEN [NAPROXEN SODIUM] [Concomitant]
     Indication: Back pain
     Dosage: UNK
  15. DULACKHAN EASY [Concomitant]
     Indication: Prophylaxis
     Dosage: UNK
  16. ALOXI [Concomitant]
     Active Substance: PALONOSETRON HYDROCHLORIDE
     Indication: Prophylaxis
     Dosage: UNK
     Dates: start: 20221221
  17. DEXAMETHASONE [Concomitant]
     Active Substance: DEXAMETHASONE
     Indication: Prophylaxis
     Dosage: UNK
     Dates: start: 20221221
  18. MACPERAN [METOCLOPRAMIDE HYDROCHLORIDE] [Concomitant]
     Indication: Prophylaxis
     Dosage: UNK
     Dates: start: 20221221
  19. GASTER [CROMOGLICATE SODIUM] [Concomitant]
     Indication: Prophylaxis
     Dosage: UNK
     Dates: start: 20221221
  20. COUGH SYRUP [AMMONIUM CHLORIDE;CHLORPHENAMINE MALEATE;DIHYDROCODEINE B [Concomitant]
     Indication: Cough
     Dosage: UNK
     Dates: start: 20221221
  21. ACETYLCYSTEINE [Concomitant]
     Active Substance: ACETYLCYSTEINE
     Dosage: UNK
     Dates: start: 20221221
  22. NALOXONE HYDROCHLORIDE\OXYCODONE HYDROCHLORIDE [Concomitant]
     Active Substance: NALOXONE HYDROCHLORIDE\OXYCODONE HYDROCHLORIDE
     Indication: Abdominal pain
     Dosage: UNK
     Dates: start: 20221221
  23. POLYETHYLENE GLYCOL 4000 [Concomitant]
     Active Substance: POLYETHYLENE GLYCOL 4000
     Indication: Prophylaxis
     Dosage: UNK
     Dates: start: 20221221
  24. OXYCODONE HYDROCHLORIDE [Concomitant]
     Active Substance: OXYCODONE HYDROCHLORIDE
     Indication: Abdominal pain
     Dosage: UNK

REACTIONS (1)
  - Febrile neutropenia [Recovered/Resolved]

NARRATIVE: CASE EVENT DATE: 20230109
